FAERS Safety Report 20119362 (Version 1)
Quarter: 2021Q4

REPORT INFORMATION
  Report Type: Report from Study
  Country: US (occurrence: US)
  Receive Date: 20211126
  Receipt Date: 20211126
  Transmission Date: 20220303
  Serious: Yes (Other)
  Sender: FDA-Public Use
  Company Number: US-ABBVIE-21K-163-4174929-00

PATIENT
  Sex: Male

DRUGS (2)
  1. SKYRIZI [Suspect]
     Active Substance: RISANKIZUMAB-RZAA
     Indication: Psoriasis
     Dosage: WEEK 0
     Route: 058
     Dates: start: 202110
  2. CELEBREX [Suspect]
     Active Substance: CELECOXIB
     Indication: Post procedural inflammation
     Dosage: ONCE DAILY
     Route: 065
     Dates: start: 20211118, end: 20211118

REACTIONS (3)
  - Meniscus operation [Recovering/Resolving]
  - Post procedural inflammation [Unknown]
  - Dyspepsia [Unknown]

NARRATIVE: CASE EVENT DATE: 20210101
